FAERS Safety Report 7048354-4 (Version None)
Quarter: 2010Q4

REPORT INFORMATION
  Report Type: 
  Country: None (occurrence: None)
  Receive Date: 20101015
  Receipt Date: 20101004
  Transmission Date: 20110411
  Serious: Yes (Hospitalization)
  Sender: FDA-Public Use
  Company Number: US-ROCHE-626965

PATIENT
  Sex: Female
  Weight: 60.5 kg

DRUGS (16)
  1. PEGINTERFERON ALFA-2A [Suspect]
     Dosage: UNIT FOR STRENGTH AND DOSE REPORTED AS UG/ML.
     Route: 058
     Dates: start: 20090312, end: 20090402
  2. PEGINTERFERON ALFA-2A [Suspect]
     Route: 058
     Dates: start: 20090402, end: 20090403
  3. RIBAVIRIN [Suspect]
     Route: 048
     Dates: start: 20090312, end: 20090402
  4. BLINDED BI 201335 NA [Suspect]
     Indication: HEPATITIS C
     Dosage: LOADING DOSE. AFTER UNBLINDING IT REVEALED THAT PATIENT RECEIVED BI 201335 NA.
     Route: 048
     Dates: start: 20090312
  5. BLINDED BI 201335 NA [Suspect]
     Dosage: MAINTENANCE DOSE. AFTER UNBLINDING IT REVEALED THAT PATIENT RECEIVED BI 201335 NA.
     Route: 048
     Dates: start: 20090315, end: 20090403
  6. SYNTHROID [Concomitant]
     Indication: HYPOTHYROIDISM
     Dosage: 1 TAB
     Route: 048
     Dates: start: 20071001
  7. VIVELLE [Concomitant]
     Indication: MENOPAUSE
     Route: 061
     Dates: start: 19980101
  8. PROMETRIUM [Concomitant]
     Indication: MENOPAUSE
     Route: 048
     Dates: start: 19980101
  9. ATIVAN [Concomitant]
     Indication: ANXIETY
     Dosage: 1 TAB
     Route: 048
     Dates: start: 20030101
  10. CALCIUM [Concomitant]
     Route: 048
     Dates: start: 20050101
  11. MIRALAX [Concomitant]
     Indication: IRRITABLE BOWEL SYNDROME
     Dosage: 1 CAPFUL 3 DAILY
     Route: 048
     Dates: start: 19980101
  12. COLACE [Concomitant]
     Indication: IRRITABLE BOWEL SYNDROME
     Route: 048
     Dates: start: 19980101
  13. DULCOLAX [Concomitant]
     Indication: IRRITABLE BOWEL SYNDROME
     Route: 048
     Dates: start: 19980101
  14. VICOPROFEN [Concomitant]
     Indication: MUSCULOSKELETAL PAIN
     Dosage: 0-2 TABS
     Route: 048
     Dates: start: 20060101
  15. AMBIEN [Concomitant]
     Indication: INSOMNIA
     Route: 048
     Dates: start: 20080101
  16. ADVIL [Concomitant]
     Indication: HEADACHE
     Route: 048
     Dates: start: 20060101

REACTIONS (4)
  - CARDIAC DISORDER [None]
  - DEAFNESS NEUROSENSORY [None]
  - DEHYDRATION [None]
  - FATIGUE [None]
